FAERS Safety Report 6093414-8 (Version None)
Quarter: 2009Q1

REPORT INFORMATION
  Report Type: 
  Country: None (occurrence: None)
  Receive Date: 20090226
  Receipt Date: 20090216
  Transmission Date: 20090719
  Serious: Yes (Other)
  Sender: FDA-Public Use
  Company Number: JP-BIOGENIDEC-2009BI005652

PATIENT
  Age: 38 Year
  Sex: Female

DRUGS (6)
  1. AVONEX [Suspect]
     Indication: RELAPSING-REMITTING MULTIPLE SCLEROSIS
     Route: 030
     Dates: start: 20070711, end: 20080815
  2. BRUFEN [Concomitant]
     Dates: start: 20070711, end: 20080815
  3. TOMIRON [Concomitant]
     Dates: start: 20071002, end: 20071006
  4. NON PYRINE COLD PREPARATION [Concomitant]
     Dates: start: 20071002, end: 20071006
  5. COCARL [Concomitant]
     Dates: start: 20080109, end: 20080116
  6. SYMMETREL [Concomitant]
     Dates: start: 20071225, end: 20080108

REACTIONS (1)
  - DRUG ERUPTION [None]
